FAERS Safety Report 4617665-1 (Version None)
Quarter: 2005Q1

REPORT INFORMATION
  Report Type: 
  Country: None (occurrence: None)
  Receive Date: 20050322
  Receipt Date: 20050201
  Transmission Date: 20050727
  Serious: Yes (Hospitalization)
  Sender: FDA-Public Use
  Company Number: 2005AP00746

PATIENT
  Age: 73 Year
  Sex: Female

DRUGS (7)
  1. OMEPRAZOLE [Suspect]
     Indication: GASTRIC ULCER
     Dosage: 20 MG DAILY PO
     Route: 048
     Dates: start: 20041224, end: 20050201
  2. LASIX [Suspect]
     Indication: CARDIAC FAILURE
     Dosage: 40 MG DAILY PO
     Route: 048
     Dates: end: 20050201
  3. URINORM [Concomitant]
  4. FOIPAN [Concomitant]
  5. PL [Concomitant]
  6. THYRADIN S [Concomitant]
  7. NORVASC [Concomitant]

REACTIONS (2)
  - BLOOD CREATINE PHOSPHOKINASE INCREASED [None]
  - HYPONATRAEMIA [None]
